FAERS Safety Report 7551826-7 (Version None)
Quarter: 2011Q2

REPORT INFORMATION
  Report Type: 
  Country: None (occurrence: None)
  Receive Date: 20110616
  Receipt Date: 20110613
  Transmission Date: 20111010
  Serious: Yes (Life-Threatening)
  Sender: FDA-Public Use
  Company Number: JP-ASTRAZENECA-2011SE36004

PATIENT
  Age: 80 Year
  Sex: Male

DRUGS (1)
  1. XYLOCAINE [Suspect]
     Indication: LOCAL ANAESTHESIA
     Dosage: DOSE UNKNOWN
     Route: 065
     Dates: start: 20110607, end: 20110607

REACTIONS (1)
  - ANAPHYLACTIC SHOCK [None]
